FAERS Safety Report 5636793-5 (Version None)
Quarter: 2008Q1

REPORT INFORMATION
  Report Type: 
  Country: None (occurrence: None)
  Receive Date: 20080225
  Receipt Date: 20080219
  Transmission Date: 20080703
  Serious: Yes (Other)
  Sender: FDA-Public Use
  Company Number: GB-MERCK-0802GBR00076

PATIENT
  Age: 65 Year
  Sex: Female
  Weight: 95 kg

DRUGS (9)
  1. ZOCOR [Suspect]
     Route: 048
     Dates: start: 20040405, end: 20080103
  2. AMLODIPINE BESYLATE [Concomitant]
     Route: 048
     Dates: start: 20040405
  3. BENDROFLUMETHIAZIDE [Concomitant]
     Route: 048
     Dates: start: 20040405
  4. CHONDROITIN [Concomitant]
     Route: 048
     Dates: start: 20080108
  5. GLYBURIDE [Concomitant]
     Route: 048
     Dates: start: 20060220
  6. GLUCOSAMINE [Concomitant]
     Route: 048
     Dates: start: 20080108
  7. METFORMIN [Concomitant]
     Route: 048
     Dates: start: 20040405
  8. ACETAMINOPHEN [Concomitant]
     Route: 048
     Dates: start: 20080111
  9. ASPIRIN [Concomitant]
     Route: 048
     Dates: start: 20040405

REACTIONS (3)
  - ALOPECIA [None]
  - OEDEMA PERIPHERAL [None]
  - SWOLLEN TONGUE [None]
